FAERS Safety Report 5952791-6 (Version None)
Quarter: 2008Q4

REPORT INFORMATION
  Report Type: 
  Country: None (occurrence: None)
  Receive Date: 20081114
  Receipt Date: 20081105
  Transmission Date: 20090506
  Serious: Yes (Life-Threatening, Hospitalization)
  Sender: FDA-Public Use
  Company Number: US-JNJFOC-20081101544

PATIENT
  Sex: Female
  Weight: 68.49 kg

DRUGS (12)
  1. FENTANYL [Suspect]
     Indication: PAIN
     Route: 062
  2. BLINDED THERAPY [Suspect]
     Indication: RHEUMATOID ARTHRITIS
     Route: 048
  3. BLINDED THERAPY [Suspect]
     Indication: OSTEOARTHRITIS
     Dosage: 1 IN 1 DAY
     Route: 048
  4. FAMVIR [Concomitant]
     Route: 048
  5. NEXIUM [Concomitant]
  6. BENICAR HCT [Concomitant]
     Dosage: 40/12.5 MG
     Route: 048
  7. COMPAZINE [Concomitant]
     Dosage: 10 MG ORAL
     Route: 048
  8. LYRICA [Concomitant]
     Route: 048
  9. DILAUDID [Concomitant]
     Dosage: 2 MG ORAL
     Route: 048
  10. TOBREX [Concomitant]
     Route: 050
  11. LOTREL [Concomitant]
     Dosage: 10/40 MG, ORAL
     Route: 048
  12. PERCOCET [Concomitant]
     Dosage: 5/325 MG ORAL
     Route: 048

REACTIONS (5)
  - ATRIAL FIBRILLATION [None]
  - HERPES ZOSTER [None]
  - PNEUMONIA [None]
  - RESPIRATORY RATE DECREASED [None]
  - UNRESPONSIVE TO STIMULI [None]
